APPROVED DRUG PRODUCT: WOLFINA
Active Ingredient: RAUWOLFIA SERPENTINA ROOT
Strength: 50MG
Dosage Form/Route: TABLET;ORAL
Application: N009255 | Product #008
Applicant: FOREST PHARMACEUTICALS INC
Approved: Approved Prior to Jan 1, 1982 | RLD: No | RS: No | Type: DISCN